FAERS Safety Report 7436765-4 (Version None)
Quarter: 2011Q2

REPORT INFORMATION
  Report Type: 
  Country: None (occurrence: None)
  Receive Date: 20110426
  Receipt Date: 20110418
  Transmission Date: 20111010
  Serious: Yes (Hospitalization)
  Sender: FDA-Public Use
  Company Number: US-ROXANE LABORATORIES, INC.-2011-RO-00529RO

PATIENT
  Age: 63 Year
  Sex: Female

DRUGS (5)
  1. ASPIRIN [Suspect]
     Dosage: 81 MG
  2. PEPCID AC [Suspect]
     Indication: GASTROOESOPHAGEAL REFLUX DISEASE
     Dosage: 40 MG
  3. CYCLOPHOSPHAMIDE [Suspect]
     Indication: BREAST CANCER
  4. PEGFILGRASTIM [Suspect]
     Indication: BREAST CANCER
     Dosage: 6 MG
  5. DOXORUBICIN [Suspect]
     Indication: BREAST CANCER

REACTIONS (1)
  - ARTERIAL THROMBOSIS [None]
